FAERS Safety Report 9321402 (Version 4)
Quarter: 2013Q4

REPORT INFORMATION
  Report Type: Spontaneous
  Country: GB (occurrence: None)
  Receive Date: 20130528
  Receipt Date: 20131105
  Transmission Date: 20140711
  Serious: Yes (Other)
  Sender: FDA-Public Use
  Company Number: AUR-APL-2013-04112

PATIENT
  Age: 56 Year
  Sex: Male
  Weight: 85.28 kg

DRUGS (1)
  1. RAMIPRIL (RAMIPRIL) [Suspect]
     Indication: ESSENTIAL HYPERTENSION
     Dates: start: 201002, end: 20130311

REACTIONS (2)
  - Swollen tongue [None]
  - Vasospasm [None]
